FAERS Safety Report 9166106 (Version 2)
Quarter: 2013Q1

REPORT INFORMATION
  Report Type: Spontaneous
  Country: FR (occurrence: FR)
  Receive Date: 20130315
  Receipt Date: 20130325
  Transmission Date: 20140127
  Serious: Yes (Life-Threatening)
  Sender: FDA-Public Use
  Company Number: FR-JNJFOC-20130306459

PATIENT
  Age: 76 Year
  Sex: Male

DRUGS (1)
  1. EPITOMAX [Suspect]
     Indication: PRODUCT USED FOR UNKNOWN INDICATION
     Route: 048
     Dates: start: 20121222, end: 20130226

REACTIONS (1)
  - Agranulocytosis [Recovered/Resolved]
